FAERS Safety Report 6100902-4 (Version None)
Quarter: 2009Q1

REPORT INFORMATION
  Report Type: 
  Country: None (occurrence: None)
  Receive Date: 20090220
  Receipt Date: 20090210
  Transmission Date: 20090719
  Serious: Yes (Other)
  Sender: FDA-Public Use
  Company Number: CHPA2009US04120

PATIENT
  Age: 47 Year
  Sex: Female
  Weight: 99.8 kg

DRUGS (1)
  1. BENEFIBER W/WHEAT DEXTRIN (NCH) (WHEAT DEXTRIN) POWDER [Suspect]
     Dosage: 6 TSP,  BID, ORAL
     Route: 048
     Dates: start: 20090209, end: 20090210

REACTIONS (4)
  - BLOOD PRESSURE FLUCTUATION [None]
  - HYPERTENSION [None]
  - OVERDOSE [None]
  - PHOTOPSIA [None]
